FAERS Safety Report 10595181 (Version 2)
Quarter: 2014Q4

REPORT INFORMATION
  Report Type: Spontaneous
  Country: US (occurrence: None)
  Receive Date: 20141118
  Receipt Date: 20141224
  Transmission Date: 20150529
  Serious: Yes (Other)
  Sender: FDA-Public Use
  Company Number: 2014SIG00011

PATIENT
  Age: 64 Year
  Sex: Male
  Weight: 129.3 kg

DRUGS (1)
  1. LIOTHYRONINE SODIUM. [Suspect]
     Active Substance: LIOTHYRONINE SODIUM
     Route: 048
     Dates: start: 2014, end: 20141110

REACTIONS (4)
  - Exercise tolerance decreased [None]
  - Product substitution issue [None]
  - Activities of daily living impaired [None]
  - Dyspnoea exertional [None]

NARRATIVE: CASE EVENT DATE: 2014
